FAERS Safety Report 23773522 (Version 1)
Quarter: 2024Q2

REPORT INFORMATION
  Report Type: Spontaneous
  Country: US (occurrence: None)
  Receive Date: 20240422
  Receipt Date: 20240422
  Transmission Date: 20240716
  Serious: No
  Sender: FDA-Public Use
  Company Number: None

PATIENT
  Age: 19 Year
  Sex: Male

DRUGS (1)
  1. KYMRIAH [Suspect]
     Active Substance: TISAGENLECLEUCEL
     Indication: Precursor B-lymphoblastic lymphoma
     Dates: start: 20231024, end: 20231024

REACTIONS (2)
  - Tachycardia [None]
  - Asthenia [None]

NARRATIVE: CASE EVENT DATE: 20231103
